FAERS Safety Report 11179643 (Version 1)
Quarter: 2015Q2

REPORT INFORMATION
  Report Type: Spontaneous
  Country: GB (occurrence: GB)
  Receive Date: 20150611
  Receipt Date: 20150611
  Transmission Date: 20150821
  Serious: Yes (Life-Threatening, Hospitalization)
  Sender: FDA-Public Use
  Company Number: GB-ASTRAZENECA-2015SE54660

PATIENT
  Age: 58 Year
  Sex: Female

DRUGS (2)
  1. INSUMAN COMB [Concomitant]
     Active Substance: INSULIN NOS
  2. DAPAGLIFLOZIN [Suspect]
     Active Substance: DAPAGLIFLOZIN
     Indication: TYPE 2 DIABETES MELLITUS
     Dosage: 10 MG, UNKNOWN, UNIT 3
     Route: 048

REACTIONS (1)
  - Diabetic ketoacidosis [Recovered/Resolved]
